FAERS Safety Report 15116832 (Version 1)
Quarter: 2018Q3

REPORT INFORMATION
  Report Type: Report from Study
  Country: US (occurrence: US)
  Receive Date: 20180706
  Receipt Date: 20180706
  Transmission Date: 20181010
  Serious: Yes (Hospitalization)
  Sender: FDA-Public Use
  Company Number: US-JNJFOC-20180705811

PATIENT
  Age: 8 Year
  Sex: Male
  Weight: 22 kg

DRUGS (20)
  1. VINCRISTINE SULFATE. [Suspect]
     Active Substance: VINCRISTINE SULFATE
     Indication: PRECURSOR T-LYMPHOBLASTIC LYMPHOMA/LEUKAEMIA
     Dosage: ON DAYS 1, 15, 29 AND 43
     Route: 042
  2. VINCRISTINE SULFATE. [Suspect]
     Active Substance: VINCRISTINE SULFATE
     Indication: PRECURSOR T-LYMPHOBLASTIC LYMPHOMA/LEUKAEMIA
     Dosage: ON DAYS 1, 8, 15, 43 AND 50
     Route: 042
     Dates: start: 20180118
  3. PEGASPARGASE [Suspect]
     Active Substance: PEGASPARGASE
     Indication: PRECURSOR T-LYMPHOBLASTIC LYMPHOMA/LEUKAEMIA
     Dosage: 2500 IU/M2
     Route: 042
  4. TIOGUANINE [Suspect]
     Active Substance: THIOGUANINE ANHYDROUS
     Indication: PRECURSOR T-LYMPHOBLASTIC LYMPHOMA/LEUKAEMIA
     Route: 048
  5. METHOTREXATE. [Suspect]
     Active Substance: METHOTREXATE
     Indication: PRECURSOR T-LYMPHOBLASTIC LYMPHOMA/LEUKAEMIA
     Dosage: 1, 8, 15 AND 22
     Route: 037
  6. METHOTREXATE. [Suspect]
     Active Substance: METHOTREXATE
     Indication: PRECURSOR T-LYMPHOBLASTIC LYMPHOMA/LEUKAEMIA
     Dosage: ON DAYS 1, 15, 29 AND 43
     Route: 037
  7. CYTARABINE. [Suspect]
     Active Substance: CYTARABINE
     Indication: PRECURSOR T-LYMPHOBLASTIC LYMPHOMA/LEUKAEMIA
     Dosage: ON DAYS 29?32, 36?39
     Route: 065
  8. BORTEZOMIB. [Suspect]
     Active Substance: BORTEZOMIB
     Indication: PRECURSOR T-LYMPHOBLASTIC LYMPHOMA/LEUKAEMIA
     Route: 042
     Dates: start: 20170620
  9. DOXORUBICIN HYDROCHLORIDE. [Suspect]
     Active Substance: DOXORUBICIN HYDROCHLORIDE
     Indication: PRECURSOR T-LYMPHOBLASTIC LYMPHOMA/LEUKAEMIA
     Dosage: ON DAYS 1, 8 AND 15
     Route: 042
     Dates: start: 20180118
  10. CYTARABINE. [Suspect]
     Active Substance: CYTARABINE
     Indication: PRECURSOR T-LYMPHOBLASTIC LYMPHOMA/LEUKAEMIA
     Route: 065
  11. CYCLOPHOSPHAMIDE. [Suspect]
     Active Substance: CYCLOPHOSPHAMIDE
     Indication: PRECURSOR T-LYMPHOBLASTIC LYMPHOMA/LEUKAEMIA
     Dosage: ON 1 AND 29 DAYS
     Route: 042
  12. PEGASPARGASE [Suspect]
     Active Substance: PEGASPARGASE
     Indication: PRECURSOR T-LYMPHOBLASTIC LYMPHOMA/LEUKAEMIA
     Dosage: 2500 IU/M2 ON DAYS 4, 18 AND 43
     Route: 042
  13. DEXAMETHASONE. [Suspect]
     Active Substance: DEXAMETHASONE
     Indication: PRECURSOR T-LYMPHOBLASTIC LYMPHOMA/LEUKAEMIA
     Route: 065
     Dates: start: 20170620
  14. CYCLOPHOSPHAMIDE. [Suspect]
     Active Substance: CYCLOPHOSPHAMIDE
     Indication: PRECURSOR T-LYMPHOBLASTIC LYMPHOMA/LEUKAEMIA
     Dosage: ON DAY 29
     Route: 042
  15. VINCRISTINE SULFATE. [Suspect]
     Active Substance: VINCRISTINE SULFATE
     Indication: PRECURSOR T-LYMPHOBLASTIC LYMPHOMA/LEUKAEMIA
     Route: 042
     Dates: start: 20170620
  16. BORTEZOMIB. [Suspect]
     Active Substance: BORTEZOMIB
     Indication: PRECURSOR T-LYMPHOBLASTIC LYMPHOMA/LEUKAEMIA
     Route: 042
     Dates: start: 20180118
  17. DEXAMETHASONE. [Suspect]
     Active Substance: DEXAMETHASONE
     Indication: PRECURSOR T-LYMPHOBLASTIC LYMPHOMA/LEUKAEMIA
     Dosage: ON DAYS 1?7 AND 15?21
     Route: 065
     Dates: start: 20180118
  18. METHOTREXATE. [Suspect]
     Active Substance: METHOTREXATE
     Indication: PRECURSOR T-LYMPHOBLASTIC LYMPHOMA/LEUKAEMIA
     Route: 037
  19. METHOTREXATE. [Suspect]
     Active Substance: METHOTREXATE
     Indication: PRECURSOR T-LYMPHOBLASTIC LYMPHOMA/LEUKAEMIA
     Dosage: ON DAYS 1, 29 AND 36
     Route: 037
     Dates: start: 20180118
  20. CYTARABINE. [Suspect]
     Active Substance: CYTARABINE
     Indication: PRECURSOR T-LYMPHOBLASTIC LYMPHOMA/LEUKAEMIA
     Route: 037

REACTIONS (1)
  - Colitis [Not Recovered/Not Resolved]

NARRATIVE: CASE EVENT DATE: 20180304
